FAERS Safety Report 5339562-9 (Version None)
Quarter: 2007Q2

REPORT INFORMATION
  Report Type: 
  Country: None (occurrence: None)
  Receive Date: 20070405
  Receipt Date: 20061213
  Transmission Date: 20071010
  Serious: No
  Sender: FDA-Public Use
  Company Number: US200611004159

PATIENT
  Age: 47 Year
  Sex: Female

DRUGS (5)
  1. CYMBALTA [Suspect]
     Indication: ANXIETY
     Dosage: SEE IMAGE
     Route: 048
     Dates: start: 20060101, end: 20060101
  2. CYMBALTA [Suspect]
     Indication: ANXIETY
     Dosage: SEE IMAGE
     Route: 048
     Dates: start: 20060901, end: 20060101
  3. CYMBALTA [Suspect]
     Indication: ANXIETY
     Dosage: SEE IMAGE
     Route: 048
     Dates: start: 20060101, end: 20061120
  4. FOSAMAX [Concomitant]
  5. MULTIVITAMIN [Concomitant]

REACTIONS (11)
  - AMENORRHOEA [None]
  - BRUXISM [None]
  - FATIGUE [None]
  - FEELING ABNORMAL [None]
  - LETHARGY [None]
  - ORAL DISCOMFORT [None]
  - ORAL PAIN [None]
  - SENSITIVITY OF TEETH [None]
  - TOOTHACHE [None]
  - VISION BLURRED [None]
  - WEIGHT INCREASED [None]
